FAERS Safety Report 6517949-6 (Version None)
Quarter: 2009Q4

REPORT INFORMATION
  Report Type: 
  Country: None (occurrence: None)
  Receive Date: 20091224
  Receipt Date: 20091211
  Transmission Date: 20100525
  Serious: Yes (Other)
  Sender: FDA-Public Use
  Company Number: CN-PFIZER INC-2009309249

PATIENT
  Sex: Male

DRUGS (1)
  1. VIAGRA [Suspect]
     Route: 048

REACTIONS (6)
  - COUGH [None]
  - DIZZINESS [None]
  - DRY SKIN [None]
  - FACE OEDEMA [None]
  - MUSCULOSKELETAL STIFFNESS [None]
  - PERIHEPATIC DISCOMFORT [None]
